FAERS Safety Report 22520213 (Version 2)
Quarter: 2023Q2

REPORT INFORMATION
  Report Type: Spontaneous
  Country: FR (occurrence: FR)
  Receive Date: 20230605
  Receipt Date: 20230608
  Transmission Date: 20230722
  Serious: Yes (Hospitalization, Other)
  Sender: FDA-Public Use
  Company Number: None

PATIENT
  Age: 67 Year
  Sex: Female
  Weight: 53 kg

DRUGS (3)
  1. ABILIFY [Suspect]
     Active Substance: ARIPIPRAZOLE
     Indication: Psychotic disorder
     Dosage: 1 TAB/DAY
     Route: 048
     Dates: start: 20230422, end: 20230522
  2. CYAMEMAZINE [Suspect]
     Active Substance: CYAMEMAZINE
     Indication: Psychotic disorder
     Dosage: 30 DROPS AT 8:00 A.M./30 DROPS AT 12:30 P.M./50 DROPS AT 7:00 P.M
     Route: 048
     Dates: start: 20230421, end: 20230522
  3. HALDOL [Suspect]
     Active Substance: HALOPERIDOL
     Indication: Psychotic disorder
     Dosage: 0.5 TAB AT 8:00 A.M./1 TAB AT 7:00 P.M
     Route: 048
     Dates: start: 20230421, end: 20230522

REACTIONS (2)
  - Agranulocytosis [Not Recovered/Not Resolved]
  - Product use in unapproved indication [Unknown]

NARRATIVE: CASE EVENT DATE: 20230422
